FAERS Safety Report 8939315 (Version 1)
Quarter: 2012Q4

REPORT INFORMATION
  Report Type: 
  Country: BR (occurrence: BR)
  Receive Date: 20121203
  Receipt Date: 20121203
  Transmission Date: 20130627
  Serious: Yes (Other)
  Sender: FDA-Public Use
  Company Number: BR-JNJFOC-20121113525

PATIENT
  Age: 18 Year
  Sex: Male
  Weight: 62 kg

DRUGS (4)
  1. HALDOL [Suspect]
     Indication: DEPRESSION
     Dosage: to be used at the night
     Route: 065
  2. HALDOL [Suspect]
     Indication: DEPRESSION
     Route: 065
     Dates: start: 20120926
  3. PONDERAX [Suspect]
     Indication: DEPRESSION
     Route: 065
     Dates: start: 20121026
  4. PONDERAX [Suspect]
     Indication: DEPRESSION
     Dosage: to be used at the night
     Route: 065

REACTIONS (3)
  - Haematochezia [Not Recovered/Not Resolved]
  - Hyperhidrosis [Unknown]
  - Depression [Recovering/Resolving]
